FAERS Safety Report 26063196 (Version 1)
Quarter: 2025Q4

REPORT INFORMATION
  Report Type: Spontaneous
  Country: EU (occurrence: EU)
  Receive Date: 20251119
  Receipt Date: 20251119
  Transmission Date: 20260117
  Serious: Yes (Other)
  Sender: GLAXOSMITHKLINE
  Company Number: None

PATIENT
  Age: 68 Year
  Sex: Male

DRUGS (2)
  1. MOMELOTINIB DIHYDROCHLORIDE [Suspect]
     Active Substance: MOMELOTINIB DIHYDROCHLORIDE
     Indication: Splenomegaly
     Dosage: 200 MG, QD
     Route: 065
  2. MOMELOTINIB DIHYDROCHLORIDE [Suspect]
     Active Substance: MOMELOTINIB DIHYDROCHLORIDE
     Dosage: 100 MG, QD (FROM JULY DOSAGE REDUCED TO 100 MG/DAY UNTIL 20 AUGUST 2025, DATE ON WHICH THE DRUG WAS SUSPENDED)
     Route: 065

REACTIONS (1)
  - Pancytopenia [Recovering/Resolving]

NARRATIVE: CASE EVENT DATE: 20250703
